FAERS Safety Report 8478269-6 (Version None)
Quarter: 2012Q2

REPORT INFORMATION
  Report Type: 
  Country: None (occurrence: None)
  Receive Date: 20120629
  Receipt Date: 20120625
  Transmission Date: 20120825
  Serious: Yes (Other)
  Sender: FDA-Public Use
  Company Number: PHFR2011GB00957

PATIENT
  Sex: Male
  Weight: 78 kg

DRUGS (14)
  1. PAROXETINE HCL [Concomitant]
     Dosage: 20 MG, QD
     Route: 048
     Dates: start: 20110414
  2. AMISULPRIDE [Concomitant]
     Dosage: 600 MG, QD
     Route: 048
     Dates: start: 20120308
  3. CLOZARIL [Suspect]
     Dosage: UNK MG, UNK
     Route: 048
     Dates: start: 20110112
  4. CLOZARIL [Suspect]
     Route: 048
     Dates: start: 20110401, end: 20120605
  5. PROPANTHELINE BROMIDE [Concomitant]
     Dosage: 7.5 MG, UNK
     Route: 048
     Dates: start: 20111023, end: 20120612
  6. CLOZARIL [Suspect]
     Dosage: 325 UKN, UNK
     Route: 048
     Dates: start: 20110117, end: 20110301
  7. DESMOPRESSIN ACETATE [Concomitant]
     Indication: ENURESIS
     Dosage: 100 UG, QD
     Route: 045
     Dates: start: 20110303
  8. FERROUS SULFATE TAB [Concomitant]
     Indication: HAEMORRHOIDS
     Dosage: 600 MG, QD
     Route: 048
     Dates: start: 20110414
  9. DIAZEPAM [Concomitant]
     Dosage: 12 MG, QD
     Route: 048
     Dates: start: 20120403
  10. CLOZARIL [Suspect]
     Indication: SCHIZOPHRENIA
     Dosage: 450 MG, QD
     Route: 048
     Dates: start: 20101117, end: 20101224
  11. PROPRANOLOL [Concomitant]
     Dosage: 40 MG, QD
     Route: 048
     Dates: start: 20110414
  12. FYBOGEL [Concomitant]
     Dosage: 2 SACHETS
     Route: 048
     Dates: start: 20100601
  13. ATROPINE [Concomitant]
     Indication: SALIVARY HYPERSECRETION
     Dosage: 2 DF, BID
     Route: 058
     Dates: start: 20110920
  14. DEPAKOTE [Concomitant]
     Dosage: 2 G, QD
     Route: 048
     Dates: start: 20110414

REACTIONS (6)
  - HAEMORRHOIDS [None]
  - PERIORBITAL OEDEMA [None]
  - DRUG INEFFECTIVE [None]
  - MALAISE [None]
  - GENERAL PHYSICAL CONDITION ABNORMAL [None]
  - ANAEMIA [None]
